FAERS Safety Report 6394819-8 (Version None)
Quarter: 2009Q4

REPORT INFORMATION
  Report Type: 
  Country: None (occurrence: None)
  Receive Date: 20091006
  Receipt Date: 20090921
  Transmission Date: 20100525
  Serious: Yes (Hospitalization)
  Sender: FDA-Public Use
  Company Number: 001255

PATIENT
  Sex: Male

DRUGS (17)
  1. LACOSAMIDE [Suspect]
     Indication: EPILEPSY
     Dosage: (400 MG BID ORAL)
     Route: 048
     Dates: start: 20030331
  2. PHENYTOIN [Concomitant]
  3. TOPIRAMATE [Concomitant]
  4. ACETAMINOPHEN [Concomitant]
  5. BISACODYL [Concomitant]
  6. LEVOCARNITINE [Concomitant]
  7. CALCITROL /00508501/ [Concomitant]
  8. TERAZOSIN HCL [Concomitant]
  9. POTASSIUM CHLORIDE [Concomitant]
  10. ALBUTEROL [Concomitant]
  11. IPRATROPIUM [Concomitant]
  12. DOXYCYCLINE [Concomitant]
  13. FUROSEMIDE [Concomitant]
  14. OMEPRAZOLE [Concomitant]
  15. NIZORAL [Concomitant]
  16. LORAZEPAM [Concomitant]
  17. SPIROLACTONE [Concomitant]

REACTIONS (4)
  - ALVEOLITIS [None]
  - IDIOPATHIC PULMONARY FIBROSIS [None]
  - OEDEMA PERIPHERAL [None]
  - STATUS ASTHMATICUS [None]
